FAERS Safety Report 23471309 (Version 1)
Quarter: 2024Q1

REPORT INFORMATION
  Report Type: Spontaneous
  Country: TW (occurrence: None)
  Receive Date: 20240202
  Receipt Date: 20240202
  Transmission Date: 20240410
  Serious: Yes (Other)
  Sender: FDA-Public Use
  Company Number: 2024A022677

PATIENT
  Age: 66 Year
  Sex: Female

DRUGS (6)
  1. OSIMERTINIB [Suspect]
     Active Substance: OSIMERTINIB
     Indication: Lung adenocarcinoma stage IV
     Route: 048
  2. OSIMERTINIB [Suspect]
     Active Substance: OSIMERTINIB
     Indication: Lung adenocarcinoma stage IV
     Route: 048
  3. ATEZOLIZUMAB [Concomitant]
     Active Substance: ATEZOLIZUMAB
     Dosage: 1500 MG), INTRAVENOUSLY EVERY 3 WEEKS
     Dates: start: 202103
  4. BEVACIZUMAB [Concomitant]
     Active Substance: BEVACIZUMAB
     Dosage: 7.5 MG/M2 INTRAVENOUSLY EVERY 3 WEEKS
     Dates: start: 202103
  5. PEMETREXED [Concomitant]
     Active Substance: PEMETREXED
     Dosage: 500 MG/M2 INTRAVENOUSLY EVERY 3 WEEKS
     Dates: start: 202103
  6. CISPLATIN [Concomitant]
     Active Substance: CISPLATIN
     Dosage: 75 M/M2 INTRAVENOUSLY EVERY 3 WEEKS
     Dates: start: 202103

REACTIONS (6)
  - Malignant neoplasm progression [Unknown]
  - Drug resistance [Unknown]
  - Metastases to pleura [Recovered/Resolved]
  - Gene mutation [Unknown]
  - Metastases to liver [Recovered/Resolved]
  - Metastases to bone [Unknown]
